FAERS Safety Report 6872640-1 (Version None)
Quarter: 2010Q3

REPORT INFORMATION
  Report Type: 
  Country: None (occurrence: None)
  Receive Date: 20100723
  Receipt Date: 20081006
  Transmission Date: 20110219
  Serious: No
  Sender: FDA-Public Use
  Company Number: US-PFIZER INC-2008085567

PATIENT
  Sex: Male
  Weight: 72.7 kg

DRUGS (2)
  1. CHANTIX [Suspect]
     Indication: SMOKING CESSATION THERAPY
     Dates: start: 20081005, end: 20081005
  2. NEXIUM [Concomitant]
     Indication: DYSPEPSIA

REACTIONS (2)
  - ABNORMAL DREAMS [None]
  - INSOMNIA [None]
